FAERS Safety Report 9266545 (Version 11)
Quarter: 2015Q2

REPORT INFORMATION
  Report Type: Report from Study
  Country: ES (occurrence: ES)
  Receive Date: 20130502
  Receipt Date: 20150618
  Transmission Date: 20150821
  Serious: Yes (Death, Life-Threatening, Hospitalization)
  Sender: FDA-Public Use
  Company Number: ES-ROCHE-1187175

PATIENT
  Age: 80 Year
  Sex: Female
  Weight: 66.5 kg

DRUGS (19)
  1. ROMILAR [Concomitant]
     Active Substance: DEXTROMETHORPHAN HYDROBROMIDE
     Indication: PROPHYLAXIS
     Route: 048
  2. NAPROSYN [Concomitant]
     Active Substance: NAPROXEN
     Indication: RHEUMATOID ARTHRITIS
     Route: 048
     Dates: start: 20120209, end: 20130425
  3. ZOCOR [Concomitant]
     Active Substance: SIMVASTATIN
     Route: 065
     Dates: start: 20121221
  4. MORPHINE [Concomitant]
     Active Substance: MORPHINE
     Indication: CARDIAC FAILURE
     Dosage: AS NEEDED
     Route: 042
     Dates: start: 20140625
  5. PREDNISONE. [Concomitant]
     Active Substance: PREDNISONE
     Indication: OSTEOARTHRITIS
     Route: 048
     Dates: start: 20120702
  6. NITRO-DUR [Concomitant]
     Active Substance: NITROGLYCERIN
     Indication: BUNDLE BRANCH BLOCK LEFT
     Dosage: PATCH
     Route: 062
  7. ACFOL [Concomitant]
     Active Substance: FOLIC ACID
     Indication: PROPHYLAXIS
     Route: 048
     Dates: start: 20121025
  8. PREDNISONA [Concomitant]
     Active Substance: PREDNISONE
     Indication: RHEUMATOID ARTHRITIS
     Route: 048
     Dates: start: 20120306, end: 20120707
  9. KALPRESS [Concomitant]
     Active Substance: VALSARTAN
     Indication: HYPERTENSION
     Route: 048
     Dates: end: 20130201
  10. TORASEMIDE [Concomitant]
     Active Substance: TORSEMIDE
     Indication: CHRONIC KIDNEY DISEASE
     Route: 048
     Dates: start: 2009, end: 20130405
  11. CHONDROITIN SULFATE [Concomitant]
     Active Substance: SODIUM CHONDROITIN SULFATE
     Route: 048
     Dates: start: 20130405
  12. NEXIUM [Concomitant]
     Active Substance: ESOMEPRAZOLE MAGNESIUM
     Indication: IMPAIRED GASTRIC EMPTYING
     Route: 048
  13. TOCILIZUMAB [Suspect]
     Active Substance: TOCILIZUMAB
     Indication: RHEUMATOID ARTHRITIS
     Dosage: DATE OF MOST RECENT DOSE: 28/MAR/2013. LAST DOSE TAKEN: 8 MG/KG
     Route: 042
     Dates: start: 20120606
  14. BESITRAN [Concomitant]
     Active Substance: SERTRALINE HYDROCHLORIDE
     Indication: DEPRESSION
     Route: 048
  15. TORASEMIDE [Concomitant]
     Active Substance: TORSEMIDE
     Route: 048
     Dates: start: 20130411, end: 20130429
  16. ELECOR [Concomitant]
     Active Substance: EPLERENONE
     Route: 048
     Dates: start: 20130411
  17. EUTIROX [Concomitant]
     Active Substance: LEVOTHYROXINE SODIUM
     Indication: HYPOTHYROIDISM
     Route: 048
     Dates: start: 2005
  18. MEIACT [Concomitant]
     Active Substance: CEFDITOREN PIVOXIL
     Indication: NASOPHARYNGITIS
     Route: 048
     Dates: start: 20121227, end: 20130103
  19. ATORVASTATIN [Concomitant]
     Active Substance: ATORVASTATIN
     Indication: RHEUMATOID ARTHRITIS
     Route: 048
     Dates: start: 20121221

REACTIONS (2)
  - Cardiac failure [Recovered/Resolved with Sequelae]
  - Cardio-respiratory arrest [Fatal]

NARRATIVE: CASE EVENT DATE: 20130129
